FAERS Safety Report 7680548-7 (Version None)
Quarter: 2011Q3

REPORT INFORMATION
  Report Type: 
  Country: None (occurrence: None)
  Receive Date: 20110812
  Receipt Date: 20110805
  Transmission Date: 20111222
  Serious: Yes (Life-Threatening, Hospitalization)
  Sender: FDA-Public Use
  Company Number: JP-ASTRAZENECA-2011SE34165

PATIENT
  Age: 15272 Day
  Sex: Male

DRUGS (7)
  1. ALBUMIN (HUMAN) [Concomitant]
     Route: 042
  2. ZOSYN [Suspect]
     Indication: PNEUMONIA
     Route: 042
     Dates: start: 20110429, end: 20110510
  3. SULFAMETHOXAZOLE [Suspect]
     Indication: PNEUMONIA
     Route: 048
     Dates: start: 20110510
  4. MINOCYCLINE HCL [Suspect]
     Indication: PNEUMONIA
     Route: 065
     Dates: start: 20110510
  5. FLUCONAZOLE [Suspect]
     Indication: PNEUMONIA
     Route: 042
     Dates: start: 20110510
  6. PASIL [Suspect]
     Indication: PNEUMONIA
     Route: 065
     Dates: start: 20110510, end: 20110528
  7. MEROPENEM [Suspect]
     Indication: PNEUMONIA
     Route: 042
     Dates: start: 20110510

REACTIONS (3)
  - LIVER DISORDER [None]
  - JAUNDICE [None]
  - RENAL FAILURE ACUTE [None]
